FAERS Safety Report 4363231-5 (Version None)
Quarter: 2004Q2

REPORT INFORMATION
  Report Type: 
  Country: None (occurrence: None)
  Receive Date: 20040517
  Receipt Date: 20040204
  Transmission Date: 20050107
  Serious: No
  Sender: FDA-Public Use
  Company Number: S04-USA-00754-01

PATIENT
  Age: 70 Year
  Sex: Female

DRUGS (9)
  1. NEMANDA (MEMANTINE) [Suspect]
     Indication: DEMENTIA ALZHEIMER'S TYPE
     Dosage: 10 MG QD PO
     Route: 048
     Dates: start: 20040203
  2. NAMENDA [Suspect]
     Indication: DEMENTIA ALZHEIMER'S TYPE
     Dosage: 5 MG QD PO
     Route: 048
     Dates: start: 20040127, end: 20040202
  3. NAVANE [Concomitant]
  4. ARICEPT [Concomitant]
  5. ZOCOR [Concomitant]
  6. NITROGLYCERIN [Concomitant]
  7. LEVOFLOXACIN [Concomitant]
  8. PREVACID [Concomitant]
  9. HUMABID LA [Concomitant]

REACTIONS (3)
  - DYSKINESIA [None]
  - PALLOR [None]
  - PERSONALITY CHANGE [None]
